FAERS Safety Report 7435764-6 (Version None)
Quarter: 2011Q2

REPORT INFORMATION
  Report Type: 
  Country: None (occurrence: None)
  Receive Date: 20110425
  Receipt Date: 20110419
  Transmission Date: 20111010
  Serious: Yes (Hospitalization, Other)
  Sender: FDA-Public Use
  Company Number: FR-PFIZER INC-2011088414

PATIENT
  Age: 85 Year
  Sex: Male

DRUGS (6)
  1. PREVISCAN [Concomitant]
     Dosage: UNK
  2. AMLODIPINE BESYLATE [Concomitant]
     Dosage: UNK
  3. HEMIGOXINE NATIVELLE [Concomitant]
     Dosage: UNK
  4. EUPANTOL [Concomitant]
     Dosage: UNK
  5. CORDARONE [Suspect]
     Dosage: UNK
     Route: 048
     Dates: start: 20101209, end: 20110101
  6. ALLOPURINOL [Concomitant]
     Dosage: UNK

REACTIONS (2)
  - HIP ARTHROPLASTY [None]
  - INTERSTITIAL LUNG DISEASE [None]
